FAERS Safety Report 9447766 (Version 1)
Quarter: 2013Q3

REPORT INFORMATION
  Report Type: Spontaneous
  Country: GB (occurrence: None)
  Receive Date: 20130805
  Receipt Date: 20130805
  Transmission Date: 20140515
  Serious: Yes (Hospitalization)
  Sender: FDA-Public Use
  Company Number: SYM-2013-07200

PATIENT
  Age: 84 Year
  Sex: Female

DRUGS (15)
  1. METRONIDAZOLE [Suspect]
     Indication: DEVICE RELATED INFECTION
     Dosage: 3 IN 1 D
     Route: 048
  2. LANSOPRAZOLE [Suspect]
     Indication: PRODUCT USED FOR UNKNOWN INDICATION
     Route: 048
  3. CALCIUM CARBONATE/COLECALCIFEROL [Suspect]
     Indication: PRODUCT USED FOR UNKNOWN INDICATION
     Dosage: 2 IN 1 D
     Route: 048
  4. ALENDRONIC ACID [Suspect]
     Indication: PRODUCT USED FOR UNKNOWN INDICATION
     Route: 048
  5. LINEZOLID [Suspect]
     Indication: DEVICE RELATED INFECTION
     Dosage: 2 IN 1 D
     Route: 048
  6. ASPIRIN [Suspect]
     Indication: PRODUCT USED FOR UNKNOWN INDICATION
     Route: 048
  7. ATENOLOL [Concomitant]
  8. ATORVASTATIN [Concomitant]
  9. PARACETAMOL [Concomitant]
  10. TRAMADOL [Concomitant]
  11. VANCOMYCIN [Concomitant]
  12. CLINDAMYCIN [Concomitant]
  13. MEROPENEM [Concomitant]
  14. RIFAMPICIN [Concomitant]
  15. BLOOD CELLS, PACKED HUMAN [Concomitant]

REACTIONS (8)
  - Peripheral sensorimotor neuropathy [None]
  - Normochromic normocytic anaemia [None]
  - Hyponatraemia [None]
  - Oesophagitis [None]
  - Pleural effusion [None]
  - Diastolic dysfunction [None]
  - Lymphoma [None]
  - Disease recurrence [None]
